FAERS Safety Report 23073145 (Version 2)
Quarter: 2023Q4

REPORT INFORMATION
  Report Type: Report from Study
  Country: TR (occurrence: None)
  Receive Date: 20231017
  Receipt Date: 20231020
  Transmission Date: 20240110
  Serious: Yes (Other)
  Sender: FDA-Public Use
  Company Number: 2023A230603

PATIENT
  Age: 68 Year
  Sex: Male

DRUGS (2)
  1. DURVALUMAB [Suspect]
     Active Substance: DURVALUMAB
     Indication: Hepatocellular carcinoma
     Dosage: ONCE IN 28 DAYS
     Route: 042
     Dates: start: 20230525, end: 20230913
  2. TREMELIMUMAB [Suspect]
     Active Substance: TREMELIMUMAB
     Indication: Hepatocellular carcinoma
     Dosage: ONCE IN 28 DAYS
     Route: 042
     Dates: start: 20230524, end: 20230524

REACTIONS (1)
  - Malignant neoplasm progression [Unknown]
